FAERS Safety Report 11867128 (Version 1)
Quarter: 2015Q4

REPORT INFORMATION
  Report Type: Spontaneous
  Country: US (occurrence: US)
  Receive Date: 20151224
  Receipt Date: 20151224
  Transmission Date: 20160305
  Serious: No
  Sender: FDA-Public Use
  Company Number: US-TAKEDA-2015TUS018510

PATIENT
  Age: 67 Year
  Sex: Female
  Weight: 86.17 kg

DRUGS (5)
  1. BRINTELLIX [Suspect]
     Active Substance: VORTIOXETINE HYDROBROMIDE
     Indication: DEPRESSION
     Dosage: 5 MG, UNK
     Route: 065
     Dates: start: 20140429, end: 20140617
  2. BRINTELLIX [Suspect]
     Active Substance: VORTIOXETINE HYDROBROMIDE
     Dosage: 10 MG, UNK
     Route: 065
     Dates: start: 20140617, end: 20140801
  3. BRINTELLIX [Suspect]
     Active Substance: VORTIOXETINE HYDROBROMIDE
     Dosage: 15 MG, UNK
     Route: 065
     Dates: start: 20140801, end: 20141222
  4. BRINTELLIX [Suspect]
     Active Substance: VORTIOXETINE HYDROBROMIDE
     Dosage: 20 MG, UNK
     Route: 065
     Dates: start: 20141222
  5. KLONOPIN [Concomitant]
     Active Substance: CLONAZEPAM
     Indication: TENSION
     Dosage: UNK
     Route: 048
     Dates: start: 2003

REACTIONS (4)
  - Dizziness [Unknown]
  - Vertigo [Recovering/Resolving]
  - Weight increased [Unknown]
  - Gait disturbance [Unknown]

NARRATIVE: CASE EVENT DATE: 201412
